FAERS Safety Report 24164004 (Version 3)
Quarter: 2024Q3

REPORT INFORMATION
  Report Type: Spontaneous
  Country: US (occurrence: US)
  Receive Date: 20240801
  Receipt Date: 20240827
  Transmission Date: 20241017
  Serious: No
  Sender: CALLIDITAS THERAPEUTICS
  Company Number: US-Calliditas-2024CAL01370

PATIENT
  Age: 47 Year
  Sex: Female
  Weight: 78.65 kg

DRUGS (10)
  1. TARPEYO [Suspect]
     Active Substance: BUDESONIDE
     Indication: Haematuria
     Route: 048
     Dates: start: 20240714
  2. VITAMINS [Concomitant]
     Active Substance: VITAMINS
  3. VITAMIN D3 K2 [Concomitant]
  4. FISH OIL [Concomitant]
     Active Substance: FISH OIL
  5. MAXALT [Concomitant]
     Active Substance: RIZATRIPTAN BENZOATE
     Indication: Migraine
  6. TELMISARTAN [Concomitant]
     Active Substance: TELMISARTAN
  7. RABEPRAZOLE [Concomitant]
     Active Substance: RABEPRAZOLE
  8. VITAMIN B12 [Concomitant]
     Active Substance: CYANOCOBALAMIN
  9. NURTEC ODT [Concomitant]
     Active Substance: RIMEGEPANT SULFATE
  10. JARDIANCE [Concomitant]
     Active Substance: EMPAGLIFLOZIN

REACTIONS (4)
  - Fungal infection [Recovered/Resolved]
  - Energy increased [Not Recovered/Not Resolved]
  - Decreased immune responsiveness [Unknown]
  - Polymenorrhoea [Unknown]

NARRATIVE: CASE EVENT DATE: 20240718
